FAERS Safety Report 8169557-1 (Version None)
Quarter: 2012Q1

REPORT INFORMATION
  Report Type: 
  Country: None (occurrence: None)
  Receive Date: 20120228
  Receipt Date: 20120217
  Transmission Date: 20120608
  Serious: Yes (Hospitalization)
  Sender: FDA-Public Use
  Company Number: US-SANOFI-AVENTIS-2012SA011645

PATIENT
  Age: 67 Year
  Sex: Male

DRUGS (2)
  1. SOLOSTAR [Suspect]
  2. LANTUS [Suspect]
     Dosage: 12 UNITS AT BEDTIME AND 8 UNITS IN THE MORNING.
     Route: 058

REACTIONS (1)
  - PANCREATITIS [None]
